FAERS Safety Report 4515231-X (Version None)
Quarter: 2004Q4

REPORT INFORMATION
  Report Type: 
  Country: None (occurrence: None)
  Receive Date: 20041129
  Receipt Date: 20041129
  Transmission Date: 20050328
  Serious: Yes (Disabling)
  Sender: FDA-Public Use
  Company Number: None

PATIENT
  Age: 41 Year
  Sex: Female
  Weight: 61.6892 kg

DRUGS (10)
  1. HUMIRA [Suspect]
     Indication: RHEUMATOID ARTHRITIS
     Dosage: 40MG SQ Q-O-WEEK THEN 40MG SQ Q WEEK
     Route: 058
     Dates: start: 20031001, end: 20040531
  2. HUMIRA [Suspect]
     Indication: RHEUMATOID ARTHRITIS
     Dosage: 40MG SQ Q-O-WEEK THEN 40MG SQ Q WEEK
     Route: 058
     Dates: start: 20040605, end: 20040723
  3. PREDNISONE [Concomitant]
  4. METHOTREXATE [Concomitant]
  5. FOLIC ACID [Concomitant]
  6. CALCIUM [Concomitant]
  7. VALIUM [Concomitant]
  8. HYDROCODONE [Concomitant]
  9. MOBIC [Concomitant]
  10. PRILOSEC [Concomitant]

REACTIONS (10)
  - BASAL GANGLION DEGENERATION [None]
  - DRUG TOXICITY [None]
  - DYSPHONIA [None]
  - FATIGUE [None]
  - FLAT AFFECT [None]
  - FREEZING PHENOMENON [None]
  - GAIT DISTURBANCE [None]
  - LOGORRHOEA [None]
  - METABOLIC DISORDER [None]
  - URINARY INCONTINENCE [None]
